FAERS Safety Report 24310365 (Version 1)
Quarter: 2024Q3

REPORT INFORMATION
  Report Type: Spontaneous
  Country: IT (occurrence: IT)
  Receive Date: 20240912
  Receipt Date: 20240912
  Transmission Date: 20241017
  Serious: Yes (Hospitalization)
  Sender: ACCORD
  Company Number: None

PATIENT
  Age: 6 Year
  Sex: Male
  Weight: 15 kg

DRUGS (1)
  1. SERTRALINE [Suspect]
     Active Substance: SERTRALINE HYDROCHLORIDE
     Indication: Accidental exposure to product by child
     Dates: start: 20240807, end: 20240807

REACTIONS (2)
  - Accidental exposure to product by child [Not Recovered/Not Resolved]
  - Sedation complication [Not Recovered/Not Resolved]

NARRATIVE: CASE EVENT DATE: 20240807
